FAERS Safety Report 8356248 (Version 6)
Quarter: 2013Q1

REPORT INFORMATION
  Report Type: Spontaneous
  Country: US (occurrence: US)
  Receive Date: 20120126
  Receipt Date: 20130326
  Transmission Date: 20140127
  Serious: Yes (Hospitalization, Disabling, Other)
  Sender: FDA-Public Use
  Company Number: US-009507513-1201USA02561

PATIENT
  Sex: Female
  Weight: 74.83 kg

DRUGS (9)
  1. FOSAMAX [Suspect]
     Indication: OSTEOPENIA
     Dosage: 70 MG, QW
     Route: 048
     Dates: start: 19980904, end: 20041110
  2. FOSAMAX [Suspect]
     Indication: OSTEOPOROSIS
  3. FOSAMAX PLUS D [Suspect]
     Indication: OSTEOPENIA
     Dosage: 70-2800MG WKLY
     Route: 048
     Dates: start: 200607, end: 201003
  4. ALENDRONATE SODIUM [Suspect]
     Indication: OSTEOPOROSIS
     Dosage: 70 MG, QW
     Route: 048
     Dates: start: 20100113, end: 20100313
  5. SINGULAIR [Concomitant]
  6. FORTEO [Concomitant]
     Indication: OSTEOPENIA
     Dosage: 20 MG, UNK
     Route: 051
     Dates: start: 20040707, end: 20061016
  7. DIDRONEL [Concomitant]
     Indication: OSTEOPENIA
     Dosage: 200 MG, UNK
     Route: 048
     Dates: start: 19970811, end: 19980904
  8. CALCIUM (UNSPECIFIED) (+) VITAMIN D (UNSPECIFIED) [Concomitant]
     Indication: OSTEOPOROSIS
     Dosage: UNK
     Dates: start: 2001
  9. PREDNISONE [Concomitant]
     Indication: ASTHMA
     Dosage: 40 MG, QD
     Dates: start: 1980

REACTIONS (60)
  - Open reduction of fracture [Unknown]
  - Chronic obstructive pulmonary disease [Not Recovered/Not Resolved]
  - Low turnover osteopathy [Unknown]
  - Multi-organ failure [Unknown]
  - Femur fracture [Unknown]
  - Foot fracture [Unknown]
  - Spinal fracture [Unknown]
  - Anxiety [Unknown]
  - Depression [Unknown]
  - Hypertension [Unknown]
  - Blood cholesterol increased [Unknown]
  - Single functional kidney [Unknown]
  - Pulmonary mass [Not Recovered/Not Resolved]
  - Swelling [Unknown]
  - Periodontal operation [Unknown]
  - Skin disorder [Unknown]
  - Stress fracture [Unknown]
  - Respiratory distress [Unknown]
  - Wound [Unknown]
  - Ovarian cyst [Unknown]
  - Endometrial atrophy [Unknown]
  - Pain [Unknown]
  - Foot fracture [Unknown]
  - Scoliosis [Unknown]
  - Spinal osteoarthritis [Unknown]
  - Uterine polyp [Unknown]
  - Pain [Unknown]
  - Cushingoid [Unknown]
  - Aortic arteriosclerosis [Unknown]
  - Peripheral artery thrombosis [Unknown]
  - Inguinal hernia [Unknown]
  - Osteoarthritis [Unknown]
  - Pubis fracture [Unknown]
  - Selective IgG subclass deficiency [Not Recovered/Not Resolved]
  - Hyperlipidaemia [Not Recovered/Not Resolved]
  - Blood calcium increased [Not Recovered/Not Resolved]
  - Bronchitis bacterial [Not Recovered/Not Resolved]
  - Sleep apnoea syndrome [Not Recovered/Not Resolved]
  - Osteopetrosis [Not Recovered/Not Resolved]
  - Chronic sinusitis [Not Recovered/Not Resolved]
  - Bacterial disease carrier [Unknown]
  - Hypertension [Not Recovered/Not Resolved]
  - Blood urea increased [Not Recovered/Not Resolved]
  - Hiatus hernia [Unknown]
  - Tooth extraction [Unknown]
  - Device breakage [Unknown]
  - Cataract operation [Unknown]
  - Transfusion [Unknown]
  - Pain in extremity [Unknown]
  - Pain in extremity [Unknown]
  - Back pain [Unknown]
  - Arthralgia [Unknown]
  - Gastrooesophageal reflux disease [Not Recovered/Not Resolved]
  - Bronchiectasis [Not Recovered/Not Resolved]
  - Bronchiectasis [Unknown]
  - Fall [Unknown]
  - Musculoskeletal pain [Unknown]
  - Myopathy [Unknown]
  - Neuropathy peripheral [Unknown]
  - Vertigo [Unknown]
